FAERS Safety Report 8087506-1 (Version None)
Quarter: 2012Q1

REPORT INFORMATION
  Report Type: 
  Country: None (occurrence: None)
  Receive Date: 20120128
  Receipt Date: 20110502
  Transmission Date: 20120608
  Serious: No
  Sender: FDA-Public Use
  Company Number: US-ABBOTT-11P-163-0723027-00

PATIENT
  Age: 56 Year
  Sex: Female

DRUGS (4)
  1. WELLBUTRIN [Concomitant]
     Indication: MENOPAUSE
     Dates: start: 20070101
  2. NEXIUM [Concomitant]
     Indication: OESOPHAGEAL SPASM
     Route: 048
     Dates: start: 20080101
  3. HUMIRA [Suspect]
     Indication: PSORIATIC ARTHROPATHY
     Dates: start: 20110101
  4. SIMVASTATIN [Concomitant]
     Indication: BLOOD CHOLESTEROL
     Dosage: 20 MG EVERY NIGHT
     Route: 048
     Dates: start: 20070101

REACTIONS (8)
  - CHEST PAIN [None]
  - MYALGIA [None]
  - VOMITING [None]
  - ERUCTATION [None]
  - BLOOD PRESSURE INCREASED [None]
  - HEADACHE [None]
  - WEIGHT DECREASED [None]
  - DIARRHOEA [None]
